FAERS Safety Report 9222497 (Version 1)
Quarter: 2013Q2

REPORT INFORMATION
  Report Type: Spontaneous
  Country: FR (occurrence: FR)
  Receive Date: 20130410
  Receipt Date: 20130410
  Transmission Date: 20140414
  Serious: Yes (Hospitalization)
  Sender: FDA-Public Use
  Company Number: FR-MYLANLABS-2013S1007277

PATIENT
  Age: 14 Year
  Sex: Female

DRUGS (1)
  1. SALBUTAMOL [Suspect]
     Indication: INTENTIONAL DRUG MISUSE
     Dosage: A DOZEN OR SO BLASTS
     Route: 003

REACTIONS (4)
  - Burns first degree [Unknown]
  - Feeling cold [Unknown]
  - Reaction to drug excipients [Unknown]
  - Intentional drug misuse [Recovered/Resolved]
